FAERS Safety Report 14964839 (Version 1)
Quarter: 2018Q2

REPORT INFORMATION
  Report Type: Spontaneous
  Country: IN (occurrence: IN)
  Receive Date: 20180601
  Receipt Date: 20180601
  Transmission Date: 20180711
  Serious: Yes (Death, Other)
  Sender: FDA-Public Use
  Company Number: PHHY2018IN011117

PATIENT
  Age: 60 Year
  Sex: Male

DRUGS (4)
  1. HYDROXYDAUNORUBICIN [Suspect]
     Active Substance: DOXORUBICIN
     Indication: LYMPHOMA
     Dosage: UNK
     Route: 065
     Dates: start: 20070919
  2. PREDNISONE. [Suspect]
     Active Substance: PREDNISONE
     Indication: LYMPHOMA
     Dosage: UNK
     Route: 065
     Dates: start: 20070919
  3. ONCOVIN [Suspect]
     Active Substance: VINCRISTINE SULFATE
     Indication: LYMPHOMA
     Dosage: UNK
     Route: 065
     Dates: start: 20070919
  4. CYCLOPHOSPHAMIDE. [Suspect]
     Active Substance: CYCLOPHOSPHAMIDE
     Indication: LYMPHOMA
     Dosage: UNK
     Route: 065
     Dates: start: 20070919

REACTIONS (3)
  - Cardiotoxicity [Recovered/Resolved]
  - Lymphoma [Fatal]
  - Recurrent cancer [Fatal]

NARRATIVE: CASE EVENT DATE: 20120607
